FAERS Safety Report 4335673-5 (Version None)
Quarter: 2004Q2

REPORT INFORMATION
  Report Type: 
  Country: None (occurrence: None)
  Receive Date: 20040409
  Receipt Date: 20040326
  Transmission Date: 20050107
  Serious: Yes (Other)
  Sender: FDA-Public Use
  Company Number: US-GLAXOSMITHKLINE-A0505072A

PATIENT
  Age: 20 Year
  Sex: Male

DRUGS (2)
  1. PAXIL CR [Suspect]
     Indication: OBSESSIVE-COMPULSIVE DISORDER
     Dosage: 25MG PER DAY
     Route: 048
     Dates: start: 20020101
  2. ALBUTEROL [Concomitant]

REACTIONS (19)
  - AGGRESSION [None]
  - AMNESIA [None]
  - ANXIETY [None]
  - COLD SWEAT [None]
  - DEPRESSION [None]
  - DISTURBANCE IN ATTENTION [None]
  - DRUG DEPENDENCE [None]
  - DRUG WITHDRAWAL SYNDROME [None]
  - HOSTILITY [None]
  - INSOMNIA [None]
  - MOOD SWINGS [None]
  - NAUSEA [None]
  - NIGHTMARE [None]
  - PANIC REACTION [None]
  - PARAESTHESIA [None]
  - SUICIDAL IDEATION [None]
  - TENSION [None]
  - TREMOR [None]
  - VOMITING [None]
